FAERS Safety Report 5065919-X (Version None)
Quarter: 2006Q3

REPORT INFORMATION
  Report Type: 
  Country: None (occurrence: None)
  Receive Date: 20060731
  Receipt Date: 20060721
  Transmission Date: 20061208
  Serious: Yes (Hospitalization)
  Sender: FDA-Public Use
  Company Number: PHRM2006FR02142

PATIENT
  Age: 1 Year
  Sex: Female

DRUGS (1)
  1. ESIDRIX [Suspect]
     Indication: HAEMATURIA
     Dosage: 5 MG, BID
     Route: 048

REACTIONS (2)
  - CALCULUS URINARY [None]
  - NO ADVERSE EFFECT [None]
